FAERS Safety Report 4322088-9 (Version None)
Quarter: 2004Q1

REPORT INFORMATION
  Report Type: 
  Country: None (occurrence: None)
  Receive Date: 20040323
  Receipt Date: 20040105
  Transmission Date: 20041129
  Serious: Yes (Death)
  Sender: FDA-Public Use
  Company Number: FR-GLAXOSMITHKLINE-B0319116A

PATIENT
  Age: 1 Day
  Sex: Female
  Weight: 3.5 kg

DRUGS (4)
  1. RETROVIR [Suspect]
     Indication: ANTIVIRAL PROPHYLAXIS
     Dosage: 7MG FOUR TIMES PER DAY
     Route: 048
     Dates: start: 20031204
  2. COMBIVIR [Suspect]
     Indication: HIV INFECTION
     Dates: start: 20031118
  3. ZIDOVUDINE [Suspect]
     Dates: start: 20031204
  4. VIRACEPT [Suspect]
     Indication: HIV INFECTION
     Dates: start: 20031118

REACTIONS (8)
  - ANAEMIA [None]
  - BLOOD LACTIC ACID INCREASED [None]
  - CAESAREAN SECTION [None]
  - DEATH [None]
  - DRUG EXPOSURE DURING PREGNANCY [None]
  - FACIAL DYSMORPHISM [None]
  - MURDER [None]
  - NEONATAL ASPHYXIA [None]
